FAERS Safety Report 7468325-3 (Version None)
Quarter: 2011Q2

REPORT INFORMATION
  Report Type: 
  Country: None (occurrence: None)
  Receive Date: 20110509
  Receipt Date: 20110503
  Transmission Date: 20111010
  Serious: Yes (Death)
  Sender: FDA-Public Use
  Company Number: AU-GENENTECH-316328

PATIENT
  Sex: Male
  Weight: 90 kg

DRUGS (23)
  1. RITUXAN [Suspect]
     Dosage: 770 MG, UNK
     Route: 042
     Dates: start: 20080729
  2. WARFARIN [Concomitant]
     Indication: PRODUCT USED FOR UNKNOWN INDICATION
     Dosage: UNK
     Dates: start: 20090101, end: 20110101
  3. RITUXAN [Suspect]
     Dosage: 770 MG, UNK
     Route: 042
     Dates: start: 20080704
  4. CYCLOPHOSPHAMIDE [Suspect]
     Indication: DIFFUSE LARGE B-CELL LYMPHOMA
     Route: 065
  5. VINCRISTINE [Suspect]
     Indication: DIFFUSE LARGE B-CELL LYMPHOMA
     Route: 065
  6. LANOXIN [Concomitant]
     Indication: PRODUCT USED FOR UNKNOWN INDICATION
     Dosage: UNK
     Dates: start: 20090101, end: 20110302
  7. NEULASTA [Suspect]
     Indication: DIFFUSE LARGE B-CELL LYMPHOMA
     Dosage: 6 A?G, UNK
     Route: 065
  8. IFOSFAMIDE [Suspect]
     Indication: DIFFUSE LARGE B-CELL LYMPHOMA
     Dosage: 2700 MG, UNK
     Route: 042
     Dates: start: 20080226
  9. DIGOXIN [Concomitant]
     Indication: PRODUCT USED FOR UNKNOWN INDICATION
     Dosage: UNK
     Dates: start: 20110101, end: 20110302
  10. MINAX [Concomitant]
     Indication: PRODUCT USED FOR UNKNOWN INDICATION
     Dosage: UNK
     Dates: start: 20090101, end: 20110302
  11. RITUXAN [Suspect]
     Dosage: 770 MG, UNK
     Route: 042
     Dates: start: 20080317
  12. DIAMICRON [Concomitant]
     Indication: PRODUCT USED FOR UNKNOWN INDICATION
     Dosage: UNK
     Dates: start: 20100101, end: 20110302
  13. RITUXAN [Suspect]
     Indication: DIFFUSE LARGE B-CELL LYMPHOMA
     Dosage: 770 MG, UNK
     Route: 042
     Dates: start: 20080226
  14. RITUXAN [Suspect]
     Dosage: 770 MG, UNK
     Route: 042
     Dates: start: 20080407
  15. RITUXAN [Suspect]
     Dosage: 770 MG, UNK
     Route: 042
     Dates: start: 20080428
  16. RITUXAN [Suspect]
     Dosage: 770 MG, UNK
     Route: 042
     Dates: start: 20080610
  17. PREDNISONE [Suspect]
     Indication: DIFFUSE LARGE B-CELL LYMPHOMA
     Route: 065
  18. SOMAC (AUSTRALIA) [Concomitant]
     Indication: PRODUCT USED FOR UNKNOWN INDICATION
     Dosage: UNK
     Dates: start: 20090101, end: 20110302
  19. INDERAL [Concomitant]
     Indication: PRODUCT USED FOR UNKNOWN INDICATION
     Dosage: UNK
     Dates: start: 20110101, end: 20110302
  20. RITUXAN [Suspect]
     Dosage: 770 MG, UNK
     Route: 042
     Dates: start: 20080520
  21. ETOPOSIDE [Suspect]
     Indication: DIFFUSE LARGE B-CELL LYMPHOMA
     Dosage: 480 MG, UNK
     Route: 042
     Dates: start: 20080226
  22. DOXORUBICIN HYDROCHLORIDE [Suspect]
     Indication: DIFFUSE LARGE B-CELL LYMPHOMA
     Dosage: UNK
     Route: 065
  23. PRAVACHOL [Concomitant]
     Indication: PRODUCT USED FOR UNKNOWN INDICATION
     Dosage: UNK
     Dates: start: 20090101, end: 20110302

REACTIONS (1)
  - MYELODYSPLASTIC SYNDROME [None]
